FAERS Safety Report 20478534 (Version 3)
Quarter: 2022Q2

REPORT INFORMATION
  Report Type: Report from Study
  Country: CA (occurrence: CA)
  Receive Date: 20220216
  Receipt Date: 20220401
  Transmission Date: 20220721
  Serious: Yes (Hospitalization, Other)
  Sender: FDA-Public Use
  Company Number: CA-JNJFOC-20220227662

PATIENT
  Age: 82 Year
  Sex: Female

DRUGS (1)
  1. REMICADE [Suspect]
     Active Substance: INFLIXIMAB
     Indication: Rheumatoid arthritis
     Route: 042
     Dates: start: 20120809

REACTIONS (7)
  - COVID-19 [Recovering/Resolving]
  - Cataract [Unknown]
  - Hypertension [Recovered/Resolved]
  - Sinus disorder [Unknown]
  - Eye pain [Unknown]
  - Eyelid margin crusting [Unknown]
  - Palpitations [Unknown]

NARRATIVE: CASE EVENT DATE: 20190201
